FAERS Safety Report 5622192-9 (Version None)
Quarter: 2008Q1

REPORT INFORMATION
  Report Type: 
  Country: None (occurrence: None)
  Receive Date: 20080211
  Receipt Date: 20080204
  Transmission Date: 20080703
  Serious: Yes (Hospitalization)
  Sender: FDA-Public Use
  Company Number: JP-ASTRAZENECA-2008AP00354

PATIENT
  Age: 79 Year
  Sex: Male

DRUGS (13)
  1. MEROPENEM [Suspect]
     Indication: PNEUMONIA
     Route: 042
     Dates: start: 20071002, end: 20071006
  2. TOYOFAROL [Concomitant]
     Indication: OSTEOPOROSIS
     Route: 048
  3. FUROSEMIDE [Concomitant]
     Indication: CARDIAC FAILURE CHRONIC
     Route: 048
     Dates: start: 20000912
  4. BASEN [Concomitant]
     Indication: DIABETES MELLITUS
     Dates: start: 20000912
  5. PREDONINE [Concomitant]
     Indication: POLYMYALGIA RHEUMATICA
     Route: 048
     Dates: start: 20020904
  6. NITRODERM [Concomitant]
     Indication: ANGINA PECTORIS
     Route: 062
     Dates: start: 20020905
  7. BUFFERIN [Concomitant]
     Indication: CEREBRAL INFARCTION
     Route: 048
     Dates: start: 20060714
  8. UNASYN [Concomitant]
     Indication: PNEUMONIA
     Route: 042
     Dates: start: 20070930, end: 20071002
  9. NORMAL SALINE SOLUTION [Concomitant]
     Indication: PNEUMONIA
     Route: 042
     Dates: start: 20070930, end: 20071002
  10. NORMAL SALINE SOLUTION [Concomitant]
     Route: 042
     Dates: start: 20071002, end: 20071006
  11. SOLDEM 3A [Concomitant]
     Indication: DEHYDRATION
     Route: 042
     Dates: start: 20070930, end: 20071009
  12. SODIUM CHLORIDE INJ [Concomitant]
     Indication: DEHYDRATION
     Route: 042
     Dates: start: 20071002, end: 20071009
  13. COUGHNOL [Concomitant]
     Indication: PNEUMONIA
     Route: 048
     Dates: start: 20071002, end: 20071006

REACTIONS (1)
  - HEPATIC FUNCTION ABNORMAL [None]
